FAERS Safety Report 10873525 (Version 1)
Quarter: 2015Q1

REPORT INFORMATION
  Report Type: Spontaneous
  Country: US (occurrence: US)
  Receive Date: 20150227
  Receipt Date: 20150227
  Transmission Date: 20150721
  Serious: No
  Sender: FDA-Public Use
  Company Number: US-SHIRE-US201501622

PATIENT
  Age: 58 Year
  Sex: Male
  Weight: 74.83 kg

DRUGS (4)
  1. DULOXETINE HYDROCHLORIDE. [Concomitant]
     Active Substance: DULOXETINE HYDROCHLORIDE
     Indication: DEPRESSION
     Dosage: 60 MG, 1X/DAY:QD
     Route: 048
     Dates: start: 2008
  2. COPAXONE [Concomitant]
     Active Substance: GLATIRAMER ACETATE
     Indication: MULTIPLE SCLEROSIS
     Dosage: 20 MG, 1X/DAY:QD
     Route: 058
     Dates: start: 2009, end: 2014
  3. COPAXONE [Concomitant]
     Active Substance: GLATIRAMER ACETATE
     Dosage: 40 MG, OTHER (THREE TIMES A WEEK)
     Route: 058
     Dates: start: 2014
  4. ADDERALL XR [Suspect]
     Active Substance: AMPHETAMINE ASPARTATE\AMPHETAMINE SULFATE\DEXTROAMPHETAMINE SACCHARATE\DEXTROAMPHETAMINE SULFATE
     Indication: FATIGUE
     Dosage: 10 MG, 1X/DAY:QD
     Route: 048
     Dates: start: 2012, end: 201501

REACTIONS (5)
  - Fatigue [Recovered/Resolved]
  - Therapeutic response unexpected [Recovered/Resolved]
  - Asthenia [Not Recovered/Not Resolved]
  - Drug dose omission [Not Recovered/Not Resolved]
  - Product use issue [Recovered/Resolved]

NARRATIVE: CASE EVENT DATE: 2012
